FAERS Safety Report 9939185 (Version 1)
Quarter: 2014Q1

REPORT INFORMATION
  Report Type: Report from Study
  Country: US (occurrence: US)
  Receive Date: 20140303
  Receipt Date: 20140303
  Transmission Date: 20141002
  Serious: No
  Sender: FDA-Public Use
  Company Number: US-ABBVIE-13P-163-1034082-00

PATIENT
  Sex: Female

DRUGS (7)
  1. HUMIRA [Suspect]
     Indication: CROHN^S DISEASE
     Dates: start: 20121228, end: 20121228
  2. HUMIRA [Suspect]
  3. RISPERIDONE [Concomitant]
     Indication: BIPOLAR DISORDER
  4. CELEXA [Concomitant]
     Indication: DEPRESSION
  5. AZATHIOPRINE [Concomitant]
     Indication: CROHN^S DISEASE
  6. TYLENOL [Concomitant]
     Indication: PAIN
  7. IBUPROFEN [Concomitant]
     Indication: PAIN

REACTIONS (1)
  - Injection site pain [Recovered/Resolved]
